FAERS Safety Report 9610309 (Version 2)
Quarter: 2013Q4

REPORT INFORMATION
  Report Type: Spontaneous
  Country: US (occurrence: US)
  Receive Date: 20131009
  Receipt Date: 20131009
  Transmission Date: 20140711
  Serious: No
  Sender: FDA-Public Use
  Company Number: US-PURDUE-USA-2012-0095921

PATIENT
  Age: 24 Year
  Sex: Male
  Weight: 72.56 kg

DRUGS (1)
  1. BUTRANS [Suspect]
     Indication: ARTHRALGIA
     Dosage: 20 MCG, UNK
     Route: 062
     Dates: start: 20120615

REACTIONS (4)
  - Application site discolouration [Not Recovered/Not Resolved]
  - Application site rash [Not Recovered/Not Resolved]
  - Migraine [Not Recovered/Not Resolved]
  - Application site pruritus [Not Recovered/Not Resolved]
